FAERS Safety Report 8493309-6 (Version None)
Quarter: 2012Q3

REPORT INFORMATION
  Report Type: 
  Country: None (occurrence: None)
  Receive Date: 20120706
  Receipt Date: 20120702
  Transmission Date: 20120928
  Serious: No
  Sender: FDA-Public Use
  Company Number: US-PFIZER INC-2012158603

PATIENT
  Age: 73 Year
  Sex: Female
  Weight: 66.667 kg

DRUGS (2)
  1. ADVIL PM [Suspect]
     Indication: PAIN
     Dosage: 200/38 MG ONCE
     Dates: start: 20120629, end: 20120629
  2. BENICAR [Concomitant]
     Indication: HYPERTENSION
     Dosage: 40 MG, DAILY

REACTIONS (4)
  - PSYCHOMOTOR HYPERACTIVITY [None]
  - AGITATION [None]
  - INSOMNIA [None]
  - RESTLESSNESS [None]
